FAERS Safety Report 9521476 (Version 1)
Quarter: 2013Q3

REPORT INFORMATION
  Report Type: Spontaneous
  Country: US (occurrence: None)
  Receive Date: 20130904
  Receipt Date: 20130904
  Transmission Date: 20140515
  Serious: Yes (Other)
  Sender: FDA-Public Use
  Company Number: 2013037487

PATIENT
  Sex: Female
  Weight: 62.6 kg

DRUGS (1)
  1. PRIVIGEN [Suspect]
     Indication: STIFF PERSON SYNDROME
     Dates: end: 201304

REACTIONS (7)
  - Off label use [None]
  - Hypersensitivity [None]
  - Pharyngeal oedema [None]
  - Dyspnoea [None]
  - Throat irritation [None]
  - Chest discomfort [None]
  - Headache [None]
